FAERS Safety Report 9261320 (Version 1)
Quarter: 2013Q2

REPORT INFORMATION
  Report Type: Spontaneous
  Country: JP (occurrence: JP)
  Receive Date: 20130429
  Receipt Date: 20130429
  Transmission Date: 20140414
  Serious: Yes (Other)
  Sender: FDA-Public Use
  Company Number: JP-GLAXOSMITHKLINE-B0882089A

PATIENT
  Age: 8 Decade
  Sex: Female

DRUGS (6)
  1. REQUIP [Suspect]
     Indication: PARKINSON^S DISEASE
     Dosage: 2MG PER DAY
     Route: 048
  2. REQUIP [Suspect]
     Indication: PARKINSON^S DISEASE
     Dosage: 8MG PER DAY
     Route: 048
  3. REQUIP [Suspect]
     Indication: PARKINSON^S DISEASE
     Dosage: 12MG PER DAY
     Route: 048
  4. REQUIP [Suspect]
     Indication: PARKINSON^S DISEASE
     Dosage: 8MG PER DAY
     Route: 048
  5. MENESIT [Suspect]
     Indication: PRODUCT USED FOR UNKNOWN INDICATION
     Route: 048
  6. FP [Suspect]
     Indication: PRODUCT USED FOR UNKNOWN INDICATION
     Route: 048

REACTIONS (3)
  - Urinary retention [Unknown]
  - Hallucination, visual [Not Recovered/Not Resolved]
  - Constipation [Unknown]
